FAERS Safety Report 4461140-4 (Version None)
Quarter: 2004Q3

REPORT INFORMATION
  Report Type: 
  Country: None (occurrence: None)
  Receive Date: 20040923
  Receipt Date: 20040909
  Transmission Date: 20050211
  Serious: Yes (Hospitalization)
  Sender: FDA-Public Use
  Company Number: FABR-10740

PATIENT
  Age: 55 Year
  Sex: Female
  Weight: 74.3899 kg

DRUGS (7)
  1. FABRAZYME [Suspect]
     Indication: FABRY'S DISEASE
     Dosage: 70 MG Q2WKS IV
     Route: 042
     Dates: start: 20040713
  2. COUMADIN [Concomitant]
  3. LOPRESSOR [Concomitant]
  4. ASPIRIN [Concomitant]
  5. ALTACE [Concomitant]
  6. PREMARIN [Concomitant]
  7. VALTREX [Concomitant]

REACTIONS (5)
  - CHOLECYSTECTOMY [None]
  - HYSTERECTOMY [None]
  - PANCREATITIS ACUTE [None]
  - PROTEINURIA [None]
  - TREATMENT NONCOMPLIANCE [None]
